FAERS Safety Report 19756698 (Version 3)
Quarter: 2021Q3

REPORT INFORMATION
  Report Type: Spontaneous
  Country: DE (occurrence: DE)
  Receive Date: 20210828
  Receipt Date: 20210903
  Transmission Date: 20211014
  Serious: No
  Sender: FDA-Public Use
  Company Number: DE-UCBSA-2021040967

PATIENT
  Sex: Female

DRUGS (1)
  1. LEGANTO [Suspect]
     Active Substance: ROTIGOTINE
     Indication: PRODUCT USED FOR UNKNOWN INDICATION
     Dosage: 2MG UNK

REACTIONS (2)
  - Drug ineffective [Unknown]
  - Device adhesion issue [Unknown]
